FAERS Safety Report 21649957 (Version 1)
Quarter: 2022Q4

REPORT INFORMATION
  Report Type: Spontaneous
  Country: CA (occurrence: None)
  Receive Date: 20221128
  Receipt Date: 20221128
  Transmission Date: 20230113
  Serious: Yes (Other)
  Sender: FDA-Public Use
  Company Number: CA-ROCHE-3225625

PATIENT
  Age: 67 Year
  Sex: Female

DRUGS (4)
  1. ACTEMRA [Suspect]
     Active Substance: TOCILIZUMAB
     Indication: Rheumatoid arthritis
     Route: 058
  2. VAXZEVRIA [Suspect]
     Active Substance: AZD-1222
     Indication: COVID-19 immunisation
     Route: 030
  3. FOLIC ACID [Concomitant]
     Active Substance: FOLIC ACID
  4. METHOTREXATE [Concomitant]
     Active Substance: METHOTREXATE

REACTIONS (2)
  - Osteoarthritis [Unknown]
  - Therapeutic product effect decreased [Unknown]
